FAERS Safety Report 6419528-8 (Version None)
Quarter: 2009Q4

REPORT INFORMATION
  Report Type: 
  Country: None (occurrence: None)
  Receive Date: 20091029
  Receipt Date: 20091019
  Transmission Date: 20100525
  Serious: Yes (Other)
  Sender: FDA-Public Use
  Company Number: JP-PFIZER INC-2009286277

PATIENT

DRUGS (3)
  1. HALCION [Suspect]
     Route: 048
  2. LENDORMIN [Suspect]
  3. DORAL [Suspect]

REACTIONS (1)
  - ROAD TRAFFIC ACCIDENT [None]
